FAERS Safety Report 14895283 (Version 6)
Quarter: 2020Q3

REPORT INFORMATION
  Report Type: Report from Study
  Country: GB (occurrence: GB)
  Receive Date: 20180515
  Receipt Date: 20190712
  Transmission Date: 20201105
  Serious: Yes (Hospitalization)
  Sender: FDA-Public Use
  Company Number: GB-ROCHE-2089496

PATIENT
  Age: 20 Year
  Sex: Male
  Weight: 73 kg

DRUGS (16)
  1. EMICIZUMAB. [Suspect]
     Active Substance: EMICIZUMAB
     Indication: FACTOR VIII DEFICIENCY
     Dosage: INITIAL DOSE: 200 MG (VOLUME 1.34 ML)?LAST DOSE PRIOR TO SAE: 06/MAR/2018, 110 MG (VOLUME 0.73 ML).
     Route: 058
     Dates: start: 20180109
  2. FACTOR VIIA, RECOMBINANT [Concomitant]
     Active Substance: COAGULATION FACTOR VIIA RECOMBINANT HUMAN
     Dosage: AT 11 10
     Route: 042
     Dates: start: 20180314, end: 20180314
  3. FACTOR VIIA, RECOMBINANT [Concomitant]
     Active Substance: COAGULATION FACTOR VIIA RECOMBINANT HUMAN
     Dosage: AT 11:30 AND 19:34
     Route: 042
     Dates: start: 20180316, end: 20180316
  4. FACTOR VIIA, RECOMBINANT [Concomitant]
     Active Substance: COAGULATION FACTOR VIIA RECOMBINANT HUMAN
     Dosage: AT 14 50
     Route: 042
     Dates: start: 20180318, end: 20180318
  5. SENNA [SENNA ALEXANDRINA] [Concomitant]
     Active Substance: SENNA LEAF
     Indication: CONSTIPATION
     Dosage: UNIT DOSE: 7.5 CAPSULE. DAILY DOSE:  15 CAPSULE
     Route: 048
  6. FACTOR VIII [Concomitant]
     Active Substance: ANTIHEMOPHILIC FACTOR HUMAN
     Route: 065
     Dates: start: 20181009
  7. FACTOR VIIA, RECOMBINANT [Concomitant]
     Active Substance: COAGULATION FACTOR VIIA RECOMBINANT HUMAN
     Dosage: AT 14 17
     Route: 042
     Dates: start: 20180316, end: 20180316
  8. FACTOR VIIA, RECOMBINANT [Concomitant]
     Active Substance: COAGULATION FACTOR VIIA RECOMBINANT HUMAN
     Dosage: AT 19 45
     Route: 042
     Dates: start: 20180318, end: 20180318
  9. CHLORPHENAMINE [Concomitant]
     Active Substance: CHLORPHENIRAMINE MALEATE
     Indication: HYPERSENSITIVITY
     Route: 048
     Dates: start: 20180327, end: 20180527
  10. FACTOR VIIA, RECOMBINANT [Concomitant]
     Active Substance: COAGULATION FACTOR VIIA RECOMBINANT HUMAN
     Route: 042
     Dates: start: 20180311, end: 20180311
  11. FACTOR VIIA, RECOMBINANT [Concomitant]
     Active Substance: COAGULATION FACTOR VIIA RECOMBINANT HUMAN
     Dosage: AT 21 00
     Route: 042
     Dates: start: 20180314, end: 20180314
  12. FACTOR VIIA, RECOMBINANT [Concomitant]
     Active Substance: COAGULATION FACTOR VIIA RECOMBINANT HUMAN
     Route: 042
     Dates: start: 20180312, end: 20180312
  13. FACTOR VIIA, RECOMBINANT [Concomitant]
     Active Substance: COAGULATION FACTOR VIIA RECOMBINANT HUMAN
     Dosage: AT 01 00 AND 10 00
     Route: 042
     Dates: start: 20180315, end: 20180315
  14. FACTOR VIII [Concomitant]
     Active Substance: ANTIHEMOPHILIC FACTOR HUMAN
     Indication: PROPHYLAXIS
     Dosage: STARTED AT 15:00 AND STOPPED AT 15:15?DOSE: 4000 UNIT
     Route: 042
     Dates: start: 20180107, end: 20180107
  15. FACTOR VIII [Concomitant]
     Active Substance: ANTIHEMOPHILIC FACTOR HUMAN
     Route: 042
  16. FACTOR VIIA, RECOMBINANT [Concomitant]
     Active Substance: COAGULATION FACTOR VIIA RECOMBINANT HUMAN
     Dosage: AT 01 00
     Route: 042
     Dates: start: 20180313, end: 20180313

REACTIONS (1)
  - Catheter site abscess [Recovered/Resolved]

NARRATIVE: CASE EVENT DATE: 20180311
